FAERS Safety Report 25564280 (Version 1)
Quarter: 2025Q3

REPORT INFORMATION
  Report Type: Spontaneous
  Country: JP (occurrence: JP)
  Receive Date: 20250716
  Receipt Date: 20250716
  Transmission Date: 20251021
  Serious: Yes (Death)
  Sender: DAIICHI
  Company Number: JP-DSJP-DSJ-2023-139107

PATIENT
  Age: 71 Year
  Sex: Female

DRUGS (2)
  1. ENHERTU [Suspect]
     Active Substance: FAM-TRASTUZUMAB DERUXTECAN-NXKI
     Indication: HER2 positive breast cancer
     Dosage: 5.4 MG/KG (372 MG/BODY), ONCE EVERY 3 WK
     Route: 041
     Dates: start: 20230207, end: 2023
  2. ENHERTU [Suspect]
     Active Substance: FAM-TRASTUZUMAB DERUXTECAN-NXKI
     Dosage: 4.4 MG/KG (296 MG/BODY), ONCE EVERY 3 WK
     Route: 041
     Dates: start: 202309, end: 202412

REACTIONS (3)
  - Disease progression [Fatal]
  - Gamma-glutamyltransferase increased [Recovered/Resolved]
  - Cystitis [Unknown]

NARRATIVE: CASE EVENT DATE: 20230101
